FAERS Safety Report 8511009-0 (Version None)
Quarter: 2012Q3

REPORT INFORMATION
  Report Type: 
  Country: None (occurrence: None)
  Receive Date: 20120716
  Receipt Date: 20120710
  Transmission Date: 20120928
  Serious: Yes (Hospitalization, Other)
  Sender: FDA-Public Use
  Company Number: US-BAYER-2010-002210

PATIENT
  Age: 44 Year
  Sex: Female
  Weight: 58.957 kg

DRUGS (11)
  1. SYNTHROID [Concomitant]
  2. LEVOTHYROXINE SODIUM [Concomitant]
  3. LITHIUM CARBONATE [Concomitant]
  4. YASMIN [Suspect]
     Indication: PRODUCT USED FOR UNKNOWN INDICATION
  5. COUMADIN [Concomitant]
  6. COUMADIN [Concomitant]
     Dosage: 2.5 MG, QD
  7. LITHIUM CARBONATE [Concomitant]
     Dosage: 300 MG, UNK
  8. LEVOXYL [Concomitant]
     Dosage: 25 ?G, UNK
  9. YAZ [Suspect]
     Indication: PRODUCT USED FOR UNKNOWN INDICATION
  10. DITROPAN [Concomitant]
  11. ETODOLAC [Concomitant]
     Dosage: 500 MG, UNK

REACTIONS (5)
  - CHOLECYSTITIS CHRONIC [None]
  - THROMBOSIS [None]
  - CHOLESTEROSIS [None]
  - GALLBLADDER INJURY [None]
  - DEEP VEIN THROMBOSIS [None]
